FAERS Safety Report 7638434 (Version 3)
Quarter: 2013Q4

REPORT INFORMATION
  Report Type: Spontaneous
  Country: US (occurrence: US)
  Receive Date: 20101025
  Receipt Date: 20131125
  Transmission Date: 20140711
  Serious: Yes (Hospitalization)
  Sender: FDA-Public Use
  Company Number: US-BIOGENIDEC-2010BI035916

PATIENT
  Age: 25 Year
  Sex: Female

DRUGS (2)
  1. TYSABRI [Suspect]
     Indication: MULTIPLE SCLEROSIS
     Route: 042
     Dates: start: 20100614, end: 20120413
  2. TYSABRI [Suspect]
     Indication: MULTIPLE SCLEROSIS
     Route: 042
     Dates: start: 20121012

REACTIONS (4)
  - Pleurisy [Not Recovered/Not Resolved]
  - Bronchitis [Not Recovered/Not Resolved]
  - Benign intracranial hypertension [Unknown]
  - Meningitis viral [Not Recovered/Not Resolved]
